FAERS Safety Report 18540839 (Version 1)
Quarter: 2020Q4

REPORT INFORMATION
  Report Type: Spontaneous
  Country: GB (occurrence: GB)
  Receive Date: 20201124
  Receipt Date: 20201124
  Transmission Date: 20210114
  Serious: Yes (Life-Threatening, Hospitalization, Other)
  Sender: FDA-Public Use
  Company Number: NVSC2020GB313039

PATIENT
  Age: 56 Year
  Sex: Male
  Weight: 76.2 kg

DRUGS (1)
  1. CIPROFLOXACIN. [Suspect]
     Active Substance: CIPROFLOXACIN
     Indication: EPIDIDYMITIS
     Dosage: 1 G
     Route: 048
     Dates: start: 20200925, end: 20200926

REACTIONS (11)
  - Neuropathy peripheral [Recovering/Resolving]
  - Vision blurred [Unknown]
  - Anxiety [Recovering/Resolving]
  - Tendon pain [Not Recovered/Not Resolved]
  - Tinnitus [Recovered/Resolved]
  - Gastric disorder [Recovered/Resolved]
  - Tendonitis [Not Recovered/Not Resolved]
  - Confusional state [Recovering/Resolving]
  - Haemophilia [Not Recovered/Not Resolved]
  - Pain [Recovering/Resolving]
  - Burning sensation [Unknown]

NARRATIVE: CASE EVENT DATE: 20200926
